FAERS Safety Report 5712587-7 (Version None)
Quarter: 2008Q2

REPORT INFORMATION
  Report Type: 
  Country: None (occurrence: None)
  Receive Date: 20080422
  Receipt Date: 20080411
  Transmission Date: 20081010
  Serious: Yes (Death, Other)
  Sender: FDA-Public Use
  Company Number: DE-ELI_LILLY_AND_COMPANY-DE200804000802

PATIENT
  Sex: Male

DRUGS (14)
  1. FORTEO [Suspect]
     Indication: OSTEOPOROSIS
     Dosage: 20 UG, DAILY (1/D)
     Route: 065
     Dates: start: 20070529
  2. ISCOVER [Concomitant]
  3. NEXIUM [Concomitant]
  4. SIMVASTATIN [Concomitant]
  5. CORVATON RETARD [Concomitant]
  6. METOPROLOL SUCCINATE [Concomitant]
  7. CALCIUM D3 [Concomitant]
  8. PREDNISOLONE [Concomitant]
  9. TRAMADOL HCL [Concomitant]
  10. ATMADISC [Concomitant]
  11. SPIRIVA [Concomitant]
  12. MOBIC [Concomitant]
  13. DELIX [Concomitant]
  14. NEBILET [Concomitant]

REACTIONS (2)
  - MYOCARDIAL INFARCTION [None]
  - OSTEOPOROTIC FRACTURE [None]
